FAERS Safety Report 21078754 (Version 1)
Quarter: 2022Q3

REPORT INFORMATION
  Report Type: Spontaneous
  Country: US (occurrence: US)
  Receive Date: 20220713
  Receipt Date: 20220713
  Transmission Date: 20221027
  Serious: No
  Sender: FDA-Public Use
  Company Number: US-SA-SAC20220708001173

PATIENT
  Age: 48 Year
  Sex: Female

DRUGS (4)
  1. DUPIXENT [Suspect]
     Active Substance: DUPILUMAB
     Indication: Asthma
     Dosage: 300 MG
     Route: 058
  2. TRAMADOL [Suspect]
     Active Substance: TRAMADOL
     Dosage: AS NEEDED
  3. LORATADINE [Concomitant]
     Active Substance: LORATADINE
     Dosage: EVERY DAY
  4. CEFIXIME [Concomitant]
     Active Substance: CEFIXIME
     Dosage: UNK

REACTIONS (2)
  - Nausea [Unknown]
  - Somnolence [Unknown]

NARRATIVE: CASE EVENT DATE: 20220406
